FAERS Safety Report 7443117-X (Version None)
Quarter: 2011Q2

REPORT INFORMATION
  Report Type: 
  Country: None (occurrence: None)
  Receive Date: 20110420
  Receipt Date: 20110407
  Transmission Date: 20111010
  Serious: Yes (Other)
  Sender: FDA-Public Use
  Company Number: 2011SP015973

PATIENT
  Age: 10 Year
  Sex: Male

DRUGS (4)
  1. ACETAMINOPHEN [Concomitant]
  2. VENTOLIN [Concomitant]
  3. IBRUPROFEN [Concomitant]
  4. DESLORATADINE [Suspect]
     Indication: PRODUCT USED FOR UNKNOWN INDICATION
     Dates: start: 20110405, end: 20110405

REACTIONS (1)
  - HALLUCINATIONS, MIXED [None]
